FAERS Safety Report 7371039-1 (Version None)
Quarter: 2011Q1

REPORT INFORMATION
  Report Type: 
  Country: None (occurrence: None)
  Receive Date: 20110324
  Receipt Date: 20110316
  Transmission Date: 20110831
  Serious: Yes (Hospitalization)
  Sender: FDA-Public Use
  Company Number: JP-BAYER-2011-008322

PATIENT
  Sex: Male
  Weight: 61 kg

DRUGS (10)
  1. GASTROM [Concomitant]
     Dosage: DAILY DOSE 3 DF
     Route: 048
     Dates: start: 20040101
  2. TAKEPRON [Concomitant]
     Dosage: DAILY DOSE 1 DF
     Route: 048
     Dates: start: 20040101
  3. PROTECADIN [Concomitant]
     Dosage: DAILY DOSE 2 DF
     Route: 048
     Dates: start: 20040101
  4. UNCODEABLE ^UNCLASSIFIABLE^ [Concomitant]
     Dosage: DAILY DOSE 3 DF
     Route: 048
     Dates: start: 20040101
  5. NEXAVAR [Suspect]
     Indication: HEPATIC NEOPLASM MALIGNANT
     Dosage: 400 MG, QD
     Route: 048
     Dates: start: 20110114, end: 20110124
  6. EVIPROSTAT [Concomitant]
     Dosage: DAILY DOSE 1 DF
     Route: 048
     Dates: start: 20040101
  7. NEXAVAR [Suspect]
     Dosage: 200 MG, QD
     Route: 048
     Dates: start: 20110124, end: 20110201
  8. FLIVAS [Concomitant]
     Dosage: DAILY DOSE 1 DF
     Route: 048
     Dates: start: 20040101
  9. AMLODIPINE [Concomitant]
     Dosage: DAILY DOSE 1 DF
     Route: 048
     Dates: start: 20040101
  10. MICARDIS [Concomitant]
     Dosage: DAILY DOSE 1 DF
     Route: 048
     Dates: start: 19980101

REACTIONS (4)
  - PLATELET COUNT DECREASED [None]
  - HEPATIC FAILURE [None]
  - BLOOD BILIRUBIN INCREASED [None]
  - ASCITES [None]
